FAERS Safety Report 19498697 (Version 1)
Quarter: 2021Q3

REPORT INFORMATION
  Report Type: Report from Study
  Country: US (occurrence: US)
  Receive Date: 20210706
  Receipt Date: 20210706
  Transmission Date: 20211014
  Serious: Yes (Hospitalization)
  Sender: FDA-Public Use
  Company Number: US-JNJFOC-20210712153

PATIENT
  Age: 51 Year
  Sex: Male

DRUGS (3)
  1. SPRAVATO [Suspect]
     Active Substance: ESKETAMINE
     Indication: DEPRESSION
     Dosage: 56 MG, 3 TOTAL DOSES
     Dates: start: 20190528, end: 20190604
  2. SPRAVATO [Suspect]
     Active Substance: ESKETAMINE
     Dosage: 84 MG, 69 TOTAL DOSES
     Dates: start: 20190606, end: 20210617
  3. SPRAVATO [Suspect]
     Active Substance: ESKETAMINE
     Dosage: CURRENT TREATMENT SESSION
     Dates: start: 20210624, end: 20210624

REACTIONS (5)
  - Gait disturbance [Recovered/Resolved]
  - Balance disorder [Recovered/Resolved]
  - Dyskinesia [Recovered/Resolved]
  - Sedation [Recovered/Resolved]
  - Dissociation [Recovered/Resolved]

NARRATIVE: CASE EVENT DATE: 202106
